FAERS Safety Report 15415221 (Version 1)
Quarter: 2018Q3

REPORT INFORMATION
  Report Type: Report from Study
  Country: US (occurrence: US)
  Receive Date: 20180921
  Receipt Date: 20180921
  Transmission Date: 20181010
  Serious: Yes (Hospitalization)
  Sender: FDA-Public Use
  Company Number: US-BIOGEN-2018BI00632367

PATIENT
  Age: 43 Year
  Sex: Male

DRUGS (1)
  1. AVONEX [Suspect]
     Active Substance: INTERFERON BETA-1A
     Indication: MULTIPLE SCLEROSIS
     Route: 030
     Dates: start: 2014

REACTIONS (12)
  - Fall [Recovered/Resolved]
  - Constipation [Unknown]
  - Transaminases increased [Unknown]
  - Dysphagia [Unknown]
  - Sepsis [Unknown]
  - Multiple sclerosis [Unknown]
  - Supraventricular tachycardia [Unknown]
  - Muscular weakness [Unknown]
  - Acute kidney injury [Unknown]
  - Major depression [Recovered/Resolved]
  - Blood lactate dehydrogenase increased [Unknown]
  - Decubitus ulcer [Unknown]

NARRATIVE: CASE EVENT DATE: 20180721
